FAERS Safety Report 6432711-0 (Version None)
Quarter: 2009Q4

REPORT INFORMATION
  Report Type: 
  Country: None (occurrence: None)
  Receive Date: 20091105
  Receipt Date: 20091102
  Transmission Date: 20100525
  Serious: Yes (Hospitalization)
  Sender: FDA-Public Use
  Company Number: AT-EBEWE-1611OXALI09

PATIENT
  Age: 70 Year
  Sex: Male

DRUGS (3)
  1. OXALIPLATIN [Suspect]
     Indication: COLON CANCER
     Dates: start: 20090301, end: 20090601
  2. XELODA [Suspect]
  3. ASPIRIN [Concomitant]

REACTIONS (2)
  - BRONCHIECTASIS [None]
  - LUNG INFILTRATION [None]
